FAERS Safety Report 5670321-3 (Version None)
Quarter: 2008Q1

REPORT INFORMATION
  Report Type: 
  Country: None (occurrence: None)
  Receive Date: 20080314
  Receipt Date: 20080314
  Transmission Date: 20080703
  Serious: No
  Sender: FDA-Public Use
  Company Number: None

PATIENT
  Age: 67 Year
  Sex: Male
  Weight: 84.8 kg

DRUGS (2)
  1. VARENICLINE [Suspect]
     Indication: HYPERLIPIDAEMIA
     Dosage: 0.5MG OTHER PO
     Route: 048
     Dates: start: 20070211, end: 20080110
  2. VARENICLINE [Suspect]
     Indication: HYPERLIPIDAEMIA
     Dosage: 1MG BID PO
     Route: 048
     Dates: start: 20080110, end: 20080221

REACTIONS (2)
  - ABNORMAL DREAMS [None]
  - HALLUCINATION [None]
